FAERS Safety Report 15042802 (Version 2)
Quarter: 2021Q2

REPORT INFORMATION
  Report Type: Spontaneous
  Country: US (occurrence: US)
  Receive Date: 20180621
  Receipt Date: 20210414
  Transmission Date: 20210716
  Serious: Yes (Other)
  Sender: FDA-Public Use
  Company Number: US-SA-2018SA147690

PATIENT
  Age: 53 Year
  Sex: Female
  Weight: 108.4 kg

DRUGS (15)
  1. TAXOTERE [Suspect]
     Active Substance: DOCETAXEL
     Dosage: 125 MG, Q3W
     Dates: start: 20141201, end: 20141201
  2. ZOFRAN [Concomitant]
     Active Substance: ONDANSETRON HYDROCHLORIDE
  3. HERCEPTIN [Concomitant]
     Active Substance: TRASTUZUMAB
     Indication: BREAST CANCER FEMALE
  4. PERJETA [Concomitant]
     Active Substance: PERTUZUMAB
     Indication: BREAST CANCER FEMALE
  5. KYTRIL [Concomitant]
     Active Substance: GRANISETRON HYDROCHLORIDE
  6. METFORMIN [Concomitant]
     Active Substance: METFORMIN HYDROCHLORIDE
  7. TYLENOL [Concomitant]
     Active Substance: ACETAMINOPHEN
  8. DEXAMETHASONE. [Concomitant]
     Active Substance: DEXAMETHASONE
  9. LEVEMIR [Concomitant]
     Active Substance: INSULIN DETEMIR
  10. PAROXETINE. [Concomitant]
     Active Substance: PAROXETINE
  11. ELLENCE [Concomitant]
     Active Substance: EPIRUBICIN HYDROCHLORIDE
     Indication: BREAST CANCER FEMALE
  12. DECADRON [Concomitant]
     Active Substance: DEXAMETHASONE
  13. PROMETHAZINE [Concomitant]
     Active Substance: PROMETHAZINE HYDROCHLORIDE
  14. TAXOTERE [Suspect]
     Active Substance: DOCETAXEL
     Indication: BREAST CANCER FEMALE
     Dosage: 125 MG, Q3W
     Dates: start: 20141016, end: 20141016
  15. NEOSAR [Concomitant]
     Active Substance: CYCLOPHOSPHAMIDE
     Indication: BREAST CANCER FEMALE

REACTIONS (2)
  - Alopecia [Recovering/Resolving]
  - Psychological trauma [Unknown]

NARRATIVE: CASE EVENT DATE: 20141116
